FAERS Safety Report 16433945 (Version 1)
Quarter: 2019Q2

REPORT INFORMATION
  Report Type: Spontaneous
  Country: US (occurrence: US)
  Receive Date: 20190614
  Receipt Date: 20190614
  Transmission Date: 20190711
  Serious: No
  Sender: FDA-Public Use
  Company Number: US-ASTRAZENECA-2019SE75637

PATIENT
  Age: 55 Year
  Sex: Female

DRUGS (2)
  1. VICTOZA [Concomitant]
     Active Substance: LIRAGLUTIDE
  2. BYDUREON [Suspect]
     Active Substance: EXENATIDE
     Indication: TYPE 2 DIABETES MELLITUS
     Dosage: 2.0MG UNKNOWN
     Route: 065

REACTIONS (3)
  - Injection site induration [Unknown]
  - Injection site bruising [Unknown]
  - Injection site erythema [Unknown]
